FAERS Safety Report 4740711-1 (Version None)
Quarter: 2005Q3

REPORT INFORMATION
  Report Type: 
  Country: None (occurrence: None)
  Receive Date: 20050810
  Receipt Date: 20050628
  Transmission Date: 20060218
  Serious: Yes (Other)
  Sender: FDA-Public Use
  Company Number: DE-GLAXOSMITHKLINE-D0046953A

PATIENT
  Age: 71 Year
  Sex: Female
  Weight: 59 kg

DRUGS (8)
  1. FORTUM [Suspect]
     Indication: BRONCHIECTASIS
     Dosage: .5G SINGLE DOSE
     Route: 065
     Dates: start: 20050501
  2. FORTUM [Suspect]
     Indication: PROPHYLAXIS
     Route: 065
     Dates: start: 20050201
  3. FORTUM [Suspect]
     Dosage: 2G TWICE PER DAY
     Route: 042
     Dates: start: 20030101, end: 20041101
  4. TOBRAMYCIN [Concomitant]
     Dosage: 40MG PER DAY
     Route: 065
     Dates: start: 20030101
  5. CIPROFLOXACIN HCL [Concomitant]
     Route: 065
     Dates: start: 20041101
  6. DIOVAN [Concomitant]
     Indication: HYPERTENSION
     Dosage: 160MG UNKNOWN
     Route: 048
  7. SORTIS [Concomitant]
     Indication: HYPERLIPIDAEMIA
     Dosage: 10MG UNKNOWN
     Route: 048
     Dates: start: 20040101
  8. SPIRIVA [Concomitant]
     Dosage: 18UG IN THE MORNING
     Route: 055
     Dates: start: 20030101

REACTIONS (11)
  - BLISTER [None]
  - C-REACTIVE PROTEIN INCREASED [None]
  - EYELID OEDEMA [None]
  - LIP BLISTER [None]
  - MUCOSAL INFLAMMATION [None]
  - ORAL MUCOSAL BLISTERING [None]
  - PYREXIA [None]
  - RASH [None]
  - RASH MACULAR [None]
  - SKIN REACTION [None]
  - STEVENS-JOHNSON SYNDROME [None]
